FAERS Safety Report 21112301 (Version 1)
Quarter: 2022Q3

REPORT INFORMATION
  Report Type: Spontaneous
  Country: IT (occurrence: IT)
  Receive Date: 20220721
  Receipt Date: 20220721
  Transmission Date: 20221027
  Serious: Yes (Other)
  Sender: FDA-Public Use
  Company Number: None

PATIENT
  Age: 56 Year
  Sex: Female

DRUGS (4)
  1. SERTRALINE HYDROCHLORIDE [Suspect]
     Active Substance: SERTRALINE HYDROCHLORIDE
     Dosage: 750 MG;  IN ADMINISTERED 15 TABLETS TOTAL
     Route: 048
  2. DELORAZEPAM [Suspect]
     Active Substance: DELORAZEPAM
     Dosage: 1 MG/ML; 100 ML/TOTAL
     Route: 048
     Dates: start: 20220328
  3. LEVOSULPIRIDE [Concomitant]
     Active Substance: LEVOSULPIRIDE
     Dosage: 1.5 DF, DAILY; 12.5+12.5+12.5MG/DIE
     Route: 048
  4. ATARAX [Concomitant]
     Active Substance: HYDROXYZINE HYDROCHLORIDE
     Dosage: 25 MG, DAILY
     Route: 048

REACTIONS (7)
  - Overdose [Recovered/Resolved]
  - Drug abuse [Recovered/Resolved]
  - Intentional self-injury [Recovered/Resolved]
  - Psychomotor skills impaired [Recovered/Resolved]
  - Sinus bradycardia [Unknown]
  - Persecutory delusion [Unknown]
  - Self-injurious ideation [Unknown]

NARRATIVE: CASE EVENT DATE: 20220328
